FAERS Safety Report 4414443-3 (Version None)
Quarter: 2004Q3

REPORT INFORMATION
  Report Type: 
  Country: None (occurrence: None)
  Receive Date: 20040803
  Receipt Date: 20031117
  Transmission Date: 20050211
  Serious: Yes (Disabling, Other)
  Sender: FDA-Public Use
  Company Number: GB-MERCK-0311GBR00165

PATIENT
  Age: 58 Year
  Sex: Female
  Weight: 69 kg

DRUGS (4)
  1. AMLODIPINE MALEATE [Concomitant]
     Indication: HYPERTENSION
     Route: 048
     Dates: start: 19950101
  2. ESTRADIOL [Concomitant]
     Indication: MENOPAUSE
     Route: 061
     Dates: start: 19940101
  3. ZETIA [Suspect]
     Indication: HYPERCHOLESTEROLAEMIA
     Route: 048
     Dates: start: 20030415, end: 20031021
  4. OMEPRAZOLE [Concomitant]
     Indication: HIATUS HERNIA
     Route: 048
     Dates: start: 19980101

REACTIONS (3)
  - ABDOMINAL DISCOMFORT [None]
  - LIPIDS INCREASED [None]
  - PANCREATITIS [None]
